FAERS Safety Report 8199335-9 (Version None)
Quarter: 2012Q1

REPORT INFORMATION
  Report Type: 
  Country: None (occurrence: None)
  Receive Date: 20120309
  Receipt Date: 20120306
  Transmission Date: 20120608
  Serious: Yes (Life-Threatening, Hospitalization, Other)
  Sender: FDA-Public Use
  Company Number: PHHY2011GB111717

PATIENT
  Age: 42 Year
  Sex: Male
  Weight: 104 kg

DRUGS (10)
  1. CITALOPRAM HYDROBROMIDE [Concomitant]
     Indication: SCHIZOPHRENIA
     Dosage: 200 MG, BID
  2. CYCLOPHOSPHAMIDE [Suspect]
     Indication: DIFFUSE LARGE B-CELL LYMPHOMA
     Dosage: 1600 MG, UNK
     Route: 042
     Dates: start: 20111122
  3. PREDNISOLONE [Suspect]
     Indication: DIFFUSE LARGE B-CELL LYMPHOMA
     Dosage: 60 MG, UNK
     Route: 042
     Dates: start: 20111122
  4. CLOZAPINE [Suspect]
     Indication: SCHIZOPHRENIA
     Dosage: 200 MG, BID
     Route: 048
     Dates: start: 20100915, end: 20111201
  5. NEUPOGEN [Suspect]
     Indication: DIFFUSE LARGE B-CELL LYMPHOMA
     Dosage: 800 MG, UNK
     Route: 042
     Dates: start: 20111123
  6. PIRENZEPINE [Concomitant]
     Indication: SCHIZOPHRENIA
  7. AMISULPRIDE [Concomitant]
     Indication: SCHIZOPHRENIA
     Dosage: 200 MG, BID
  8. VINCRISTINE [Suspect]
     Indication: DIFFUSE LARGE B-CELL LYMPHOMA
     Dosage: 2 MG, UNK
     Route: 042
     Dates: start: 20111122
  9. CLOZAPINE [Suspect]
     Dosage: 200 MG, BID
     Route: 048
     Dates: start: 20111202
  10. DOXORUBICIN HCL [Suspect]
     Indication: DIFFUSE LARGE B-CELL LYMPHOMA
     Dosage: 110 MG, UNK
     Route: 042
     Dates: start: 20111122

REACTIONS (4)
  - AGRANULOCYTOSIS [None]
  - BLOOD DISORDER [None]
  - LEUKOPENIA [None]
  - NEUTROPENIA [None]
